FAERS Safety Report 21683176 (Version 1)
Quarter: 2022Q4

REPORT INFORMATION
  Report Type: Report from Study
  Country: US (occurrence: US)
  Receive Date: 20221205
  Receipt Date: 20221205
  Transmission Date: 20230113
  Serious: No
  Sender: FDA-Public Use
  Company Number: US-ABBVIE-4194861

PATIENT
  Sex: Male

DRUGS (1)
  1. SKYRIZI [Suspect]
     Active Substance: RISANKIZUMAB-RZAA
     Indication: Product used for unknown indication
     Dosage: ON BODY INJECTOR
     Route: 058

REACTIONS (3)
  - Injection site swelling [Recovered/Resolved]
  - Unevaluable event [Recovering/Resolving]
  - Abdominal pain [Recovering/Resolving]
